FAERS Safety Report 18405366 (Version 1)
Quarter: 2020Q4

REPORT INFORMATION
  Report Type: Spontaneous
  Country: US (occurrence: US)
  Receive Date: 20201020
  Receipt Date: 20201020
  Transmission Date: 20210114
  Serious: Yes (Hospitalization)
  Sender: FDA-Public Use
  Company Number: None

PATIENT
  Age: 73 Year
  Sex: Female

DRUGS (19)
  1. ESTRACE [Concomitant]
     Active Substance: ESTRADIOL
  2. HYQVIA [Suspect]
     Active Substance: HUMAN IMMUNOGLOBULIN G\HYALURONIDASE RECOMBINANT HUMAN
     Indication: IMMUNODEFICIENCY COMMON VARIABLE
     Route: 058
     Dates: start: 20180117
  3. VITAMIN B12 [Concomitant]
     Active Substance: CYANOCOBALAMIN
  4. MCT OIL [Concomitant]
  5. BUDESONIDE. [Concomitant]
     Active Substance: BUDESONIDE
  6. FOSINOPN^L [Concomitant]
  7. ROSUVASTATIN. [Concomitant]
     Active Substance: ROSUVASTATIN
  8. HYDROXYCH LOR [Concomitant]
  9. FLONASE [Concomitant]
     Active Substance: FLUTICASONE PROPIONATE
  10. LLGY?C A?ZYRTE [Concomitant]
  11. METAXALONE. [Concomitant]
     Active Substance: METAXALONE
  12. LEVOTHYROXIN [Concomitant]
     Active Substance: LEVOTHYROXINE
  13. CARVEDILOL. [Concomitant]
     Active Substance: CARVEDILOL
  14. VALSART [Concomitant]
     Active Substance: VALSARTAN
  15. PROBIOTIC [Concomitant]
     Active Substance: PROBIOTICS NOS
  16. ASPIRIN. [Concomitant]
     Active Substance: ASPIRIN
  17. MONTELU KA ST [Concomitant]
  18. NASONEX [Concomitant]
     Active Substance: MOMETASONE FUROATE
  19. VALACYCLOVIR [Concomitant]
     Active Substance: VALACYCLOVIR HYDROCHLORIDE

REACTIONS (2)
  - Urinary tract infection [None]
  - Cystitis [None]

NARRATIVE: CASE EVENT DATE: 20200829
